FAERS Safety Report 8369066-0 (Version None)
Quarter: 2012Q2

REPORT INFORMATION
  Report Type: 
  Country: None (occurrence: None)
  Receive Date: 20120518
  Receipt Date: 20120511
  Transmission Date: 20120825
  Serious: Yes (Hospitalization)
  Sender: FDA-Public Use
  Company Number: US-BAYER-2012-007749

PATIENT
  Age: 32 Year
  Sex: Female
  Weight: 84.807 kg

DRUGS (10)
  1. FLUCONAZOLE [Concomitant]
     Dosage: UNK
     Dates: start: 20100101
  2. ORTHO CYCLEN-28 [Concomitant]
     Dosage: UNK
     Dates: start: 20091201, end: 20100501
  3. YASMIN [Suspect]
     Dosage: UNK
     Route: 048
     Dates: start: 20081101, end: 20091201
  4. RIZATRIPTAN [Concomitant]
  5. DOCUSATE CALCIUM [Concomitant]
  6. ASTELIN [Concomitant]
     Dosage: UNK
     Dates: start: 20090321, end: 20091214
  7. FEXOFENADINE [Concomitant]
     Dosage: UNK
     Dates: start: 20070101
  8. ANTARA (MICRONIZED) [Concomitant]
  9. ALBUTEROL [Concomitant]
     Dosage: UNK
     Dates: start: 20100201
  10. SIMETHICONE [Concomitant]
     Dosage: 80 MG, UNK
     Dates: start: 20100127

REACTIONS (9)
  - CHOLECYSTITIS CHRONIC [None]
  - CHOLECYSTITIS [None]
  - EMOTIONAL DISTRESS [None]
  - PSYCHOLOGICAL TRAUMA [None]
  - FEAR [None]
  - PAIN [None]
  - ANXIETY [None]
  - ANHEDONIA [None]
  - INJURY [None]
